FAERS Safety Report 12560857 (Version 1)
Quarter: 2016Q3

REPORT INFORMATION
  Report Type: Spontaneous
  Country: ES (occurrence: ES)
  Receive Date: 20160715
  Receipt Date: 20160715
  Transmission Date: 20161109
  Serious: Yes (Hospitalization, Other)
  Sender: FDA-Public Use
  Company Number: ES-ACTAVIS-2016-15476

PATIENT
  Age: 39 Year
  Sex: Female

DRUGS (1)
  1. MESALAZINE (UNKNOWN) [Suspect]
     Active Substance: MESALAMINE
     Indication: COLITIS ULCERATIVE
     Dosage: 3.6 G, DAILY
     Route: 065

REACTIONS (1)
  - Eosinophilic pneumonia [Recovered/Resolved]
